FAERS Safety Report 22071272 (Version 2)
Quarter: 2023Q1

REPORT INFORMATION
  Report Type: Spontaneous
  Country: SE (occurrence: SE)
  Receive Date: 20230307
  Receipt Date: 20230314
  Transmission Date: 20230418
  Serious: Yes (Life-Threatening)
  Sender: FDA-Public Use
  Company Number: 23_00022349(0)

PATIENT
  Age: 4 Year
  Sex: Male

DRUGS (2)
  1. DEXMEDETOMIDINE HYDROCHLORIDE [Suspect]
     Active Substance: DEXMEDETOMIDINE HYDROCHLORIDE
     Indication: Sedative therapy
     Dosage: STRENGTH:100 MICROGRAMS/ML, DOSE: 48 MCG (3 MCG/KG), SINGLE DOSE (48 MCG)
     Route: 045
     Dates: start: 20230127, end: 20230127
  2. SEVOFLURANE [Concomitant]
     Active Substance: SEVOFLURANE
     Indication: Product used for unknown indication
     Dosage: 100 %
     Route: 065
     Dates: start: 20230127, end: 20230127

REACTIONS (4)
  - Syncope [Recovered/Resolved]
  - Bradycardia [Recovered/Resolved]
  - Product administered to patient of inappropriate age [Unknown]
  - Product use issue [Unknown]

NARRATIVE: CASE EVENT DATE: 20230127
